FAERS Safety Report 8013639-1 (Version None)
Quarter: 2011Q4

REPORT INFORMATION
  Report Type: 
  Country: None (occurrence: None)
  Receive Date: 20111229
  Receipt Date: 20111226
  Transmission Date: 20120403
  Serious: Yes (Other)
  Sender: FDA-Public Use
  Company Number: JP-PFIZER INC-2011298027

PATIENT
  Age: 72 Year
  Sex: Male
  Weight: 62 kg

DRUGS (4)
  1. GENOTROPIN GOQUICK [Suspect]
     Indication: GROWTH HORMONE DEFICIENCY
     Dosage: UNK
     Route: 058
     Dates: start: 20100224, end: 20111221
  2. AMOBAN [Concomitant]
     Indication: INSOMNIA
     Dosage: 7.5 UNK, 1X/DAY
     Route: 048
     Dates: start: 20091013
  3. PREDNISOLONE [Concomitant]
     Dosage: 5 UNK, 3X/DAY
     Route: 048
     Dates: start: 20111212
  4. EPLERENONE [Concomitant]
     Indication: PRIMARY HYPERALDOSTERONISM
     Dosage: 25-50 /DAY
     Route: 048
     Dates: start: 20110208

REACTIONS (4)
  - NEOPLASM RECURRENCE [None]
  - DEAFNESS [None]
  - DIZZINESS [None]
  - ACOUSTIC NEUROMA [None]
